FAERS Safety Report 9325479 (Version 1)
Quarter: 2013Q2

REPORT INFORMATION
  Report Type: Spontaneous
  Country: US (occurrence: None)
  Receive Date: 20130531
  Receipt Date: 20130531
  Transmission Date: 20140414
  Serious: Yes (Other)
  Sender: FDA-Public Use
  Company Number: None

PATIENT
  Age: 69 Year
  Sex: Female
  Weight: 90.72 kg

DRUGS (1)
  1. ALPHAGAN P [Suspect]
     Indication: GLAUCOMA
     Route: 047
     Dates: start: 20130205, end: 20130528

REACTIONS (9)
  - Hypersensitivity [None]
  - Vision blurred [None]
  - Dry mouth [None]
  - Ocular hyperaemia [None]
  - Urticaria [None]
  - Joint swelling [None]
  - Myalgia [None]
  - Photophobia [None]
  - Eyelid irritation [None]
